FAERS Safety Report 7411674-5 (Version None)
Quarter: 2011Q2

REPORT INFORMATION
  Report Type: 
  Country: None (occurrence: None)
  Receive Date: 20110413
  Receipt Date: 20101209
  Transmission Date: 20111010
  Serious: No
  Sender: FDA-Public Use
  Company Number: US-BRISTOL-MYERS SQUIBB COMPANY-15358906

PATIENT
  Age: 66 Year
  Sex: Male

DRUGS (2)
  1. ERBITUX [Suspect]
     Indication: HEAD AND NECK CANCER
     Dosage: RECEIEVED ALSO 480MG
     Route: 042
     Dates: start: 20101028
  2. BENADRYL [Concomitant]
     Indication: PREMEDICATION
     Route: 042

REACTIONS (4)
  - ERYTHEMA [None]
  - PRURITUS [None]
  - HYPOTENSION [None]
  - RASH [None]
